FAERS Safety Report 12582788 (Version 5)
Quarter: 2016Q4

REPORT INFORMATION
  Report Type: Report from Study
  Country: JP (occurrence: JP)
  Receive Date: 20160722
  Receipt Date: 20161006
  Transmission Date: 20170207
  Serious: Yes (Hospitalization)
  Sender: FDA-Public Use
  Company Number: JP-JNJFOC-20160713730

PATIENT
  Age: 0 Day
  Sex: Male
  Weight: 3 kg

DRUGS (7)
  1. ISENTRESS [Suspect]
     Active Substance: RALTEGRAVIR POTASSIUM
     Indication: HIV INFECTION
     Dosage: MOTHER^S DOSING
     Route: 064
     Dates: start: 20160118, end: 20160118
  2. FERROUS CITRATE NA [Concomitant]
     Active Substance: SODIUM FERROUS CITRATE
     Indication: ANAEMIA
     Route: 064
     Dates: start: 20151217, end: 20160116
  3. TRUVADA [Suspect]
     Active Substance: EMTRICITABINE\TENOFOVIR DISOPROXIL FUMARATE
     Indication: HIV INFECTION
     Dosage: MOTHER^S DOSING
     Route: 064
     Dates: start: 20130816, end: 20160118
  4. NORVIR [Suspect]
     Active Substance: RITONAVIR
     Indication: HIV INFECTION
     Dosage: MOTHER^S DOSING
     Route: 064
     Dates: start: 20130816, end: 20160114
  5. CEFAZOLIN NA [Concomitant]
     Indication: PROPHYLAXIS
     Route: 064
     Dates: start: 20160118, end: 20160118
  6. RETROVIR [Concomitant]
     Active Substance: ZIDOVUDINE
     Indication: INFECTION PROPHYLAXIS
     Route: 064
     Dates: start: 20160118, end: 20160118
  7. PREZISTA [Suspect]
     Active Substance: DARUNAVIR ETHANOLATE
     Indication: HIV INFECTION
     Dosage: MOTHER^S DOSING
     Route: 064
     Dates: start: 20130816, end: 20160114

REACTIONS (3)
  - Foetal exposure during pregnancy [Recovered/Resolved]
  - Premature baby [Not Recovered/Not Resolved]
  - Neonatal respiratory distress syndrome [Recovered/Resolved]

NARRATIVE: CASE EVENT DATE: 20160118
